FAERS Safety Report 25838809 (Version 1)
Quarter: 2025Q3

REPORT INFORMATION
  Report Type: Report from Study
  Country: US (occurrence: US)
  Receive Date: 20250924
  Receipt Date: 20250924
  Transmission Date: 20251020
  Serious: No
  Sender: BIOGEN
  Company Number: US-BIOGEN-2025BI01324625

PATIENT
  Sex: Female

DRUGS (2)
  1. ZURZUVAE [Suspect]
     Active Substance: ZURANOLONE
     Indication: Perinatal depression
     Dosage: TAKE 50MG (2 CAPSULES) DAILY WITH A HIGH FAT MEAL FOR 14 DAYS
     Route: 050
  2. ZURZUVAE [Suspect]
     Active Substance: ZURANOLONE
     Route: 050

REACTIONS (2)
  - Abdominal discomfort [Unknown]
  - Dizziness [Unknown]
